FAERS Safety Report 5725396-X (Version None)
Quarter: 2008Q2

REPORT INFORMATION
  Report Type: 
  Country: None (occurrence: None)
  Receive Date: 20080501
  Receipt Date: 20080427
  Transmission Date: 20081010
  Serious: Yes (Other)
  Sender: FDA-Public Use
  Company Number: IL-PFIZER INC-2008022807

PATIENT
  Age: 70 Year
  Sex: Male

DRUGS (5)
  1. GEODON [Suspect]
     Indication: PSYCHOTIC DISORDER
  2. GEODON [Suspect]
     Indication: PARKINSON'S DISEASE
  3. ANTI-PARKINSON AGENTS [Concomitant]
  4. SEROQUEL [Concomitant]
  5. RISPERDAL [Concomitant]

REACTIONS (2)
  - HYPOAESTHESIA [None]
  - PARKINSON'S DISEASE [None]
